FAERS Safety Report 18248588 (Version 4)
Quarter: 2020Q4

REPORT INFORMATION
  Report Type: Spontaneous
  Country: FR (occurrence: FR)
  Receive Date: 20200909
  Receipt Date: 20201020
  Transmission Date: 20210113
  Serious: No
  Sender: FDA-Public Use
  Company Number: FR-JNJFOC-20200841056

PATIENT
  Age: 35 Year
  Sex: Female

DRUGS (7)
  1. HYDROCORTISONE. [Suspect]
     Active Substance: HYDROCORTISONE
     Dosage: 2 TO 3 ADMINISTRATIONS PER DAY, 10 MG IN THE MORNING, 5 MG AT NOON AND 5 MG AT 4 P.M.,
     Route: 048
  2. DUROGESIC [Suspect]
     Active Substance: FENTANYL
     Indication: PAIN
     Dosage: 75 MILLIGRAM, Q3D (EVERY 3 DAYS)
     Route: 062
  3. PREDNISONE. [Suspect]
     Active Substance: PREDNISONE
     Indication: PRODUCT USED FOR UNKNOWN INDICATION
     Dosage: 2 MG IN THE MORNING AND 3 MG IN THE EVENING, THEN 5 MG IN THE MORNING FOR 1 YEAR
     Route: 065
  4. DEHYDROEPIANDROSTERONE [Suspect]
     Active Substance: PRASTERONE
     Indication: ADRENAL INSUFFICIENCY
     Dosage: UNK
     Route: 065
  5. OXYCODONE [Suspect]
     Active Substance: OXYCODONE
     Indication: PAIN
     Dosage: UNK
     Route: 065
  6. FLUDROCORTISONE [Suspect]
     Active Substance: FLUDROCORTISONE
     Indication: ADRENAL INSUFFICIENCY
     Dosage: UNK
     Route: 065
  7. HYDROCORTISONE. [Suspect]
     Active Substance: HYDROCORTISONE
     Indication: ADRENAL INSUFFICIENCY
     Dosage: UNK
     Route: 058

REACTIONS (1)
  - Drug ineffective [Unknown]
